FAERS Safety Report 16979543 (Version 1)
Quarter: 2019Q4

REPORT INFORMATION
  Report Type: Spontaneous
  Country: US (occurrence: US)
  Receive Date: 20191031
  Receipt Date: 20191031
  Transmission Date: 20200122
  Serious: Yes (Other)
  Sender: FDA-Public Use
  Company Number: US-MYLANLABS-2019M1102609

PATIENT
  Sex: Male

DRUGS (1)
  1. HALOPERIDOL TABLETS, USP [Suspect]
     Active Substance: HALOPERIDOL
     Indication: TOURETTE^S DISORDER
     Dosage: UNK
     Route: 048

REACTIONS (2)
  - Neck pain [Unknown]
  - Type 2 diabetes mellitus [Not Recovered/Not Resolved]
